FAERS Safety Report 11333284 (Version 1)
Quarter: 2015Q3

REPORT INFORMATION
  Report Type: Spontaneous
  Country: US (occurrence: US)
  Receive Date: 20150803
  Receipt Date: 20150803
  Transmission Date: 20151125
  Serious: No
  Sender: FDA-Public Use
  Company Number: US-ELI_LILLY_AND_COMPANY-US200712003049

PATIENT
  Age: 35 Year
  Sex: Female

DRUGS (2)
  1. ZYPREXA ZYDIS [Suspect]
     Active Substance: OLANZAPINE
     Dosage: 20 MG, EACH EVENING
     Route: 048
  2. ZYPREXA ZYDIS [Suspect]
     Active Substance: OLANZAPINE
     Indication: SCHIZOAFFECTIVE DISORDER
     Dosage: 10 MG, EACH MORNING
     Route: 048

REACTIONS (3)
  - Prescribed overdose [Not Recovered/Not Resolved]
  - Weight increased [Unknown]
  - Blood glucose increased [Unknown]

NARRATIVE: CASE EVENT DATE: 2007
